FAERS Safety Report 17392247 (Version 2)
Quarter: 2022Q2

REPORT INFORMATION
  Report Type: Spontaneous
  Country: US (occurrence: US)
  Receive Date: 20200207
  Receipt Date: 20220505
  Transmission Date: 20220721
  Serious: Yes (Life-Threatening, Other)
  Sender: FDA-Public Use
  Company Number: US-SUN PHARMACEUTICAL INDUSTRIES LTD-2020R1-235822

PATIENT
  Sex: Female

DRUGS (1)
  1. BUPROPION [Suspect]
     Active Substance: BUPROPION
     Indication: Product used for unknown indication
     Dosage: UNK
     Route: 065

REACTIONS (5)
  - Cardiogenic shock [Unknown]
  - Overdose [Unknown]
  - Mental status changes [Not Recovered/Not Resolved]
  - Seizure [Recovering/Resolving]
  - Ejection fraction decreased [Not Recovered/Not Resolved]
